FAERS Safety Report 11095944 (Version 2)
Quarter: 2015Q2

REPORT INFORMATION
  Report Type: Spontaneous
  Country: FR (occurrence: None)
  Receive Date: 20150505
  Receipt Date: 20150511
  Transmission Date: 20150821
  Serious: Yes (Hospitalization)
  Sender: FDA-Public Use
  Company Number: 20151375

PATIENT
  Age: 78 Year
  Sex: Female

DRUGS (9)
  1. SERESTA / OXAZEPAM [Concomitant]
  2. PARACETAMOL [Concomitant]
     Active Substance: ACETAMINOPHEN
  3. PAROXETINE [Concomitant]
     Active Substance: PAROXETINE\PAROXETINE HYDROCHLORIDE
  4. METOJECT (METHOTREXATE DISODIUM) [Suspect]
     Active Substance: METHOTREXATE SODIUM
     Indication: MYCOSIS FUNGOIDES
  5. EBIXA / MEMANTINE HYDROCHLORIDE [Concomitant]
  6. DERMOVAL/CLOBETASOL PROPIONATE [Concomitant]
  7. MOVICOL / MACROGOL 3350, POTASSIUM CHLORIDE, SODIUM CHLORIDE, SODIUM HYDROGEN CARBONATE [Concomitant]
  8. EUPANTOL /PANTOPRAZOLE [Concomitant]
  9. FUMAFER/FERROUS  FUMARATE [Concomitant]

REACTIONS (3)
  - Overdose [None]
  - Weight decreased [None]
  - Product use issue [None]

NARRATIVE: CASE EVENT DATE: 20150308
